FAERS Safety Report 11114840 (Version 1)
Quarter: 2015Q2

REPORT INFORMATION
  Report Type: Spontaneous
  Country: US (occurrence: None)
  Receive Date: 20150514
  Receipt Date: 20150514
  Transmission Date: 20150821
  Serious: Yes (Hospitalization)
  Sender: FDA-Public Use
  Company Number: None

PATIENT
  Age: 19 Year
  Sex: Female
  Weight: 53.07 kg

DRUGS (5)
  1. EXCEDRIN [Suspect]
     Active Substance: ACETAMINOPHEN\ASPIRIN\CAFFEINE
  2. LOESTRIN NOS [Concomitant]
     Active Substance: ETHINYL ESTRADIOL\NORETHINDRONE ACETATE
  3. IBUPROFEN. [Concomitant]
     Active Substance: IBUPROFEN
  4. NUVARING [Suspect]
     Active Substance: ETHINYL ESTRADIOL\ETONOGESTREL
     Indication: MENSTRUATION IRREGULAR
     Dosage: 9 WEEKS ON 1 WEEK OFF, TWO SEPARATE OCCASIONS
     Route: 067
  5. NUVARING [Suspect]
     Active Substance: ETHINYL ESTRADIOL\ETONOGESTREL
     Indication: CONTRACEPTION
     Dosage: 9 WEEKS ON 1 WEEK OFF, TWO SEPARATE OCCASIONS
     Route: 067

REACTIONS (2)
  - Muscle spasms [None]
  - Mass [None]

NARRATIVE: CASE EVENT DATE: 20140516
